FAERS Safety Report 16989058 (Version 1)
Quarter: 2019Q4

REPORT INFORMATION
  Report Type: Spontaneous
  Country: US (occurrence: US)
  Receive Date: 20190919
  Receipt Date: 20190919
  Transmission Date: 20200122
  Serious: No
  Sender: FDA-Public Use
  Company Number: None

PATIENT
  Sex: Female

DRUGS (2)
  1. AFINITOR [Suspect]
     Active Substance: EVEROLIMUS
     Indication: NEOPLASM MALIGNANT
     Route: 048
     Dates: start: 20190502
  2. DEXAMETHASONE 0.5 MG/5ML HIKMA [Suspect]
     Active Substance: DEXAMETHASONE
     Indication: NEOPLASM MALIGNANT
     Route: 048
     Dates: start: 20190502

REACTIONS (1)
  - Swollen tongue [None]
